FAERS Safety Report 21921145 (Version 1)
Quarter: 2023Q1

REPORT INFORMATION
  Report Type: Spontaneous
  Country: CN (occurrence: None)
  Receive Date: 20230127
  Receipt Date: 20230127
  Transmission Date: 20230418
  Serious: Yes (Life-Threatening)
  Sender: FDA-Public Use
  Company Number: 2023A021232

PATIENT
  Age: 71 Year
  Sex: Male
  Weight: 61 kg

DRUGS (4)
  1. DURVALUMAB [Suspect]
     Active Substance: DURVALUMAB
     Indication: Small cell lung cancer metastatic
     Dosage: 1500.0MG UNKNOWN
     Route: 042
     Dates: start: 20220110
  2. DURVALUMAB [Suspect]
     Active Substance: DURVALUMAB
     Indication: Small cell lung cancer metastatic
     Dosage: 1500.0MG UNKNOWN
     Route: 042
     Dates: start: 20220201
  3. IRINOTECAN [Suspect]
     Active Substance: IRINOTECAN
     Indication: Small cell lung cancer metastatic
     Dosage: 115.0MG UNKNOWN
     Route: 065
     Dates: start: 20220110
  4. CISPLATIN [Suspect]
     Active Substance: CISPLATIN
     Indication: Small cell lung cancer metastatic
     Dosage: 50.0MG UNKNOWN
     Route: 065
     Dates: start: 20220110

REACTIONS (2)
  - Enterocolitis [Not Recovered/Not Resolved]
  - Shock haemorrhagic [Not Recovered/Not Resolved]

NARRATIVE: CASE EVENT DATE: 20220205
